FAERS Safety Report 9357585 (Version 1)
Quarter: 2013Q2

REPORT INFORMATION
  Report Type: Report from Study
  Country: CA (occurrence: CA)
  Receive Date: 20130620
  Receipt Date: 20130620
  Transmission Date: 20140414
  Serious: Yes (Other)
  Sender: FDA-Public Use
  Company Number: CA-JNJFOC-20130609988

PATIENT
  Sex: Male
  Weight: 91 kg

DRUGS (6)
  1. REMICADE [Suspect]
     Indication: CROHN^S DISEASE
     Route: 042
     Dates: start: 2013
  2. REMICADE [Suspect]
     Indication: CROHN^S DISEASE
     Route: 042
     Dates: start: 20130129
  3. IMURAN [Concomitant]
     Route: 065
  4. IMURAN [Concomitant]
     Route: 065
  5. SALOFALK [Concomitant]
     Route: 065
  6. SALOFALK [Concomitant]
     Route: 065

REACTIONS (1)
  - Fistula [Recovering/Resolving]
